FAERS Safety Report 9565113 (Version 1)
Quarter: 2013Q3

REPORT INFORMATION
  Report Type: Spontaneous
  Country: US (occurrence: US)
  Receive Date: 20130930
  Receipt Date: 20130930
  Transmission Date: 20140515
  Serious: Yes (Death, Hospitalization, Other)
  Sender: FDA-Public Use
  Company Number: US-PFIZER INC-2013275421

PATIENT
  Age: 78 Year
  Sex: Male

DRUGS (1)
  1. METHYLPREDNISOLONE ACETATE [Suspect]
     Indication: BACK PAIN
     Dosage: UNK
     Route: 008

REACTIONS (3)
  - Product contamination [Fatal]
  - Off label use [Fatal]
  - Meningitis fungal [Fatal]
